FAERS Safety Report 25283755 (Version 1)
Quarter: 2025Q2

REPORT INFORMATION
  Report Type: Spontaneous
  Country: US (occurrence: US)
  Receive Date: 20250508
  Receipt Date: 20250508
  Transmission Date: 20250716
  Serious: No
  Sender: Karo Pharma
  Company Number: US-Karo Pharma-2176401

PATIENT
  Age: 29 Year
  Sex: Female

DRUGS (10)
  1. TERBINAFINE [Suspect]
     Active Substance: TERBINAFINE
     Indication: Generalised pustular psoriasis
  2. PREDNISONE [Suspect]
     Active Substance: PREDNISONE
  3. LIDOCAINE [Suspect]
     Active Substance: LIDOCAINE
  4. TERBINAFINE [Suspect]
     Active Substance: TERBINAFINE
  5. ALCOHOL [Suspect]
     Active Substance: ALCOHOL
  6. METOPROLOL [Suspect]
     Active Substance: METOPROLOL
  7. AMOXICILLIN [Suspect]
     Active Substance: AMOXICILLIN
  8. TRIAMCINOLONE [Suspect]
     Active Substance: TRIAMCINOLONE
  9. COSENTYX [Suspect]
     Active Substance: SECUKINUMAB
  10. ACITRETIN [Suspect]
     Active Substance: ACITRETIN

REACTIONS (9)
  - Pustular psoriasis [Unknown]
  - Rash [Unknown]
  - Oropharyngeal pain [Unknown]
  - Rash pruritic [Unknown]
  - Pyrexia [Unknown]
  - Drug ineffective [Unknown]
  - Product use in unapproved indication [Unknown]
  - Dermatitis [Unknown]
  - Papule [Unknown]
